FAERS Safety Report 14760133 (Version 3)
Quarter: 2018Q3

REPORT INFORMATION
  Report Type: Report from Study
  Country: IT (occurrence: IT)
  Receive Date: 20180413
  Receipt Date: 20180705
  Transmission Date: 20181010
  Serious: Yes (Hospitalization)
  Sender: FDA-Public Use
  Company Number: IT-VALIDUS PHARMACEUTICALS LLC-IT-2018VAL000637

PATIENT
  Age: 91 Year
  Sex: Male

DRUGS (10)
  1. RAMIPRIL. [Suspect]
     Active Substance: RAMIPRIL
     Dosage: 5 MG, QCY
     Route: 048
     Dates: start: 20170209, end: 20170209
  2. FUROSEMIDE. [Suspect]
     Active Substance: FUROSEMIDE
     Indication: CHRONIC KIDNEY DISEASE
     Dosage: 500 MG, QCY
     Route: 048
     Dates: start: 20000101, end: 20000101
  3. METOPROLOL TARTRATE. [Suspect]
     Active Substance: METOPROLOL TARTRATE
     Dosage: 100 MG, QCY
     Route: 048
     Dates: start: 20170209, end: 20170209
  4. CLOPIXOL                           /00876703/ [Suspect]
     Active Substance: ZUCLOPENTHIXOL HYDROCHLORIDE
     Dosage: 25 MG, QCY
     Route: 048
     Dates: start: 20170209, end: 20170209
  5. FUROSEMIDE. [Suspect]
     Active Substance: FUROSEMIDE
     Dosage: 500 MG, EVERY CYCLE
     Route: 048
     Dates: start: 20170209, end: 20170209
  6. DELORAZEPAM [Suspect]
     Active Substance: DELORAZEPAM
     Indication: ANXIETY
     Dosage: 2 MG, QCY
     Route: 030
     Dates: start: 20160101, end: 20160101
  7. DELORAZEPAM [Suspect]
     Active Substance: DELORAZEPAM
     Dosage: 2 MG, QCY
     Route: 030
     Dates: start: 20170209, end: 20170209
  8. METOPROLOL TARTRATE. [Suspect]
     Active Substance: METOPROLOL TARTRATE
     Indication: ARRHYTHMIA
     Dosage: 100 MG, QCY
     Route: 048
     Dates: start: 20000101, end: 20000101
  9. RAMIPRIL. [Suspect]
     Active Substance: RAMIPRIL
     Indication: HYPERTENSION
     Dosage: 5 MG, QCY
     Route: 048
     Dates: start: 20000101, end: 20000101
  10. CLOPIXOL                           /00876703/ [Suspect]
     Active Substance: ZUCLOPENTHIXOL HYDROCHLORIDE
     Indication: SCHIZOPHRENIA
     Dosage: 25 MG, QCY
     Route: 048
     Dates: start: 20160101, end: 20160101

REACTIONS (3)
  - Loss of consciousness [Recovering/Resolving]
  - Haematuria [Recovering/Resolving]
  - Muscle rigidity [Recovering/Resolving]

NARRATIVE: CASE EVENT DATE: 20170209
